FAERS Safety Report 13468856 (Version 1)
Quarter: 2017Q2

REPORT INFORMATION
  Report Type: Report from Study
  Country: US (occurrence: US)
  Receive Date: 20170421
  Receipt Date: 20170421
  Transmission Date: 20170830
  Serious: No
  Sender: FDA-Public Use
  Company Number: PHEH2017US011624

PATIENT
  Age: 52 Year

DRUGS (1)
  1. COSENTYX [Suspect]
     Active Substance: SECUKINUMAB
     Indication: PSORIASIS
     Dosage: 300 MG, QW
     Route: 060
     Dates: start: 20170411

REACTIONS (5)
  - Paraesthesia [Unknown]
  - Incorrect route of drug administration [Unknown]
  - Arthralgia [Unknown]
  - Hypoaesthesia [Unknown]
  - Peripheral swelling [Unknown]

NARRATIVE: CASE EVENT DATE: 20170411
